FAERS Safety Report 6885292-1 (Version None)
Quarter: 2010Q3

REPORT INFORMATION
  Report Type: 
  Country: None (occurrence: None)
  Receive Date: 20100729
  Receipt Date: 20100729
  Transmission Date: 20110219
  Serious: Yes (Hospitalization)
  Sender: FDA-Public Use
  Company Number: None

PATIENT
  Age: 69 Year
  Sex: Male

DRUGS (3)
  1. LISINOPRIL [Suspect]
     Indication: HYPERTENSION
     Dosage: 10 MG EVERY DAY PO
     Route: 048
     Dates: start: 20100316, end: 20100726
  2. LISINOPRIL [Suspect]
     Indication: PARANOIA
     Dosage: 10 MG EVERY DAY PO
     Route: 048
     Dates: start: 20100316, end: 20100726
  3. RISPERIDONE [Suspect]
     Indication: SCHIZOPHRENIFORM DISORDER
     Dosage: 0.5 MG BID PO
     Route: 048
     Dates: start: 20060526

REACTIONS (3)
  - HYPOTENSION [None]
  - PRESYNCOPE [None]
  - URINARY TRACT INFECTION [None]
